FAERS Safety Report 17507666 (Version 3)
Quarter: 2020Q2

REPORT INFORMATION
  Report Type: Spontaneous
  Country: FR (occurrence: FR)
  Receive Date: 20200306
  Receipt Date: 20200603
  Transmission Date: 20200713
  Serious: Yes (Life-Threatening, Hospitalization, Disabling, Other)
  Sender: FDA-Public Use
  Company Number: FR-TEVA-2020-FR-1194954

PATIENT
  Age: 37 Year
  Sex: Female

DRUGS (23)
  1. TIXOCORTOL [Suspect]
     Active Substance: TIXOCORTOL PIVALATE
     Route: 065
     Dates: start: 20180511
  2. CARBON MEDICINALIS, SACCHAROMYCES CEREVISIAL [Suspect]
     Active Substance: ACTIVATED CHARCOAL\SACCHAROMYCES CEREVISIAE
     Dosage: CARBON MEDICINALIS, SACCHAROMYCES CEREVISIAL
     Route: 065
     Dates: start: 20180320
  3. PARACETAMOL [Suspect]
     Active Substance: ACETAMINOPHEN
     Route: 065
     Dates: start: 20180707
  4. NICOTIN [Suspect]
     Active Substance: NICOTINE
     Dosage: NICOTIN
     Route: 065
     Dates: start: 20180108
  5. PARACETAMOL [Suspect]
     Active Substance: ACETAMINOPHEN
     Route: 065
     Dates: start: 20180412
  6. BECLOMETHASONE [Suspect]
     Active Substance: BECLOMETHASONE
     Dosage: BECLOMETHASONE
     Route: 065
     Dates: start: 20180630
  7. OMEPRAZOL [Suspect]
     Active Substance: OMEPRAZOLE
     Route: 065
     Dates: start: 20180108
  8. DEXTROMETHORPHAN [Suspect]
     Active Substance: DEXTROMETHORPHAN
     Dosage: DEXTROMETHORPHANE
     Route: 065
     Dates: start: 20180630
  9. METRONIDAZOL [Suspect]
     Active Substance: METRONIDAZOLE
     Route: 065
     Dates: start: 20180326
  10. SULBUTIAMINE [Suspect]
     Active Substance: SULBUTIAMINE
     Route: 065
     Dates: start: 20180326
  11. TIXOCORTOL [Suspect]
     Active Substance: TIXOCORTOL PIVALATE
     Route: 065
     Dates: start: 20180630
  12. METHOCARBAMOL. [Suspect]
     Active Substance: METHOCARBAMOL
     Route: 065
     Dates: start: 20180412
  13. IBUPROFENE ZENTIVA 400 MG, COMPRIMA? PELLICULA? [Suspect]
     Active Substance: IBUPROFEN
     Dosage: IBUPROFENE ZENTIVA 400 MG, COMPRIMA? PELLICULA?
     Route: 065
  14. ERYTHROMYCINE [Suspect]
     Active Substance: ERYTHROMYCIN
     Dosage: ERYTHROMYCINE
     Route: 065
     Dates: start: 20180511
  15. CODEINE [Suspect]
     Active Substance: CODEINE
     Indication: COUGH
     Route: 065
     Dates: start: 20180630
  16. TRIMEBUTINE [Suspect]
     Active Substance: TRIMEBUTINE
     Route: 065
     Dates: start: 20180326
  17. SULFAMETHOXAZOL, TRIMETHOPRIM [Suspect]
     Active Substance: SULFAMETHOXAZOLE\TRIMETHOPRIM
     Route: 065
     Dates: start: 20180328
  18. NALTREXON [Suspect]
     Active Substance: NALTREXONE
     Dosage: NALTREXON
     Route: 065
     Dates: start: 20180320
  19. ALVERINI CITRAS, SIMETICON [Suspect]
     Active Substance: ALVERINE CITRATE\DIMETHICONE
     Dosage: ALVERINI CITRAS, SIMETICON
     Route: 065
     Dates: start: 20180320
  20. LACTOBACILLUS ACIDOPHILUS [Suspect]
     Active Substance: LACTOBACILLUS ACIDOPHILUS
     Route: 065
     Dates: start: 20180403
  21. CODEINE [Suspect]
     Active Substance: CODEINE
     Route: 065
     Dates: start: 20180707
  22. ALPRAZOLAM. [Suspect]
     Active Substance: ALPRAZOLAM
     Route: 065
     Dates: start: 20180320
  23. ZINC. [Suspect]
     Active Substance: ZINC
     Route: 065
     Dates: start: 20180511

REACTIONS (5)
  - Pneumonia streptococcal [Recovered/Resolved]
  - Necrosis ischaemic [Recovered/Resolved with Sequelae]
  - Loss of consciousness [Recovered/Resolved]
  - Septic shock [Recovered/Resolved with Sequelae]
  - Beta haemolytic streptococcal infection [Recovered/Resolved]
